FAERS Safety Report 9867799 (Version 2)
Quarter: 2014Q1

REPORT INFORMATION
  Report Type: Spontaneous
  Country: GR (occurrence: GR)
  Receive Date: 20140204
  Receipt Date: 20140204
  Transmission Date: 20141002
  Serious: Yes (Death)
  Sender: FDA-Public Use
  Company Number: GR-BAXTER-2014BAX003439

PATIENT
  Age: 90 Year
  Sex: Female
  Weight: 80 kg

DRUGS (3)
  1. EXTRANEAL SOLUTION FOR PERITONEAL DIALYSIS 7.5% W/V (75 G/L) [Suspect]
     Indication: PERITONEAL DIALYSIS
     Dosage: TOTAL VOLUME 8000 (UNITS NOT SPECIFIED)
     Route: 033
     Dates: start: 20130705
  2. EXTRANEAL SOLUTION FOR PERITONEAL DIALYSIS 7.5% W/V (75 G/L) [Suspect]
     Dosage: 1600 (UNITS NOT SPECIFIED)
     Route: 033
     Dates: start: 20130705
  3. PHYSIONEAL 40 GLUCOSE 1.36% W/V / 13.6 MG/ML, SOLUTION FOR PERITONEAL [Suspect]
     Indication: PERITONEAL DIALYSIS
     Dosage: TOTAL VOLUME 8000 (UNITS NOT SPECIFIED)
     Route: 033
     Dates: start: 20130705

REACTIONS (1)
  - Death [Fatal]
